FAERS Safety Report 13387880 (Version 1)
Quarter: 2017Q1

REPORT INFORMATION
  Report Type: Spontaneous
  Country: DE (occurrence: DE)
  Receive Date: 20170330
  Receipt Date: 20170330
  Transmission Date: 20170429
  Serious: Yes (Other)
  Sender: FDA-Public Use
  Company Number: DE-009507513-1703DEU011955

PATIENT
  Age: 68 Year
  Sex: Male
  Weight: 90 kg

DRUGS (8)
  1. NOVALGIN (DIPYRONE) [Concomitant]
     Active Substance: DIPYRONE
     Indication: PAIN
     Dosage: 2000MG, QID
     Route: 048
     Dates: start: 20170116, end: 20170307
  2. MELPERONE [Concomitant]
     Active Substance: MELPERONE
     Indication: SLEEP DISORDER
     Dosage: 2300 MG, QD
     Route: 048
     Dates: start: 20170116, end: 20170307
  3. HYDROCHLOROTHIAZIDE. [Concomitant]
     Active Substance: HYDROCHLOROTHIAZIDE
     Indication: HYPERTENSION
     Dosage: 12.5 MG, QD
     Route: 048
     Dates: start: 20170116, end: 20170307
  4. COTRIM FORTE [Concomitant]
     Active Substance: SULFAMETHOXAZOLE\TRIMETHOPRIM
     Indication: HYPERTENSION
     Dosage: 1 DF, QOD
     Route: 048
     Dates: start: 20170125, end: 20170207
  5. JANUVIA [Concomitant]
     Active Substance: SITAGLIPTIN PHOSPHATE
     Indication: DIABETES MELLITUS
     Dosage: 100 MG, QD
     Route: 048
     Dates: start: 20170116, end: 20170307
  6. MONO EMBOLEX [Concomitant]
     Active Substance: CERTOPARIN SODIUM
     Indication: PROPHYLAXIS
     Dosage: 3000 IU INTERNATIONAL UNTIS, QD
     Route: 058
     Dates: start: 20170116, end: 20170307
  7. TEMOZOLOMIDE. [Suspect]
     Active Substance: TEMOZOLOMIDE
     Indication: GLIOBLASTOMA
     Dosage: 140 MG, QD
     Route: 048
     Dates: start: 20170125, end: 20170207
  8. CONCOR [Concomitant]
     Active Substance: BISOPROLOL FUMARATE
     Indication: HYPERTENSION
     Dosage: 2.5 MG, QD
     Route: 048
     Dates: start: 20170116, end: 20170307

REACTIONS (3)
  - Hepatic enzyme increased [Unknown]
  - Blood bilirubin increased [Unknown]
  - Jaundice [Unknown]

NARRATIVE: CASE EVENT DATE: 20170302
